FAERS Safety Report 8025164-2 (Version None)
Quarter: 2012Q1

REPORT INFORMATION
  Report Type: 
  Country: None (occurrence: None)
  Receive Date: 20120105
  Receipt Date: 20120103
  Transmission Date: 20120608
  Serious: Yes (Hospitalization, Other)
  Sender: FDA-Public Use
  Company Number: US-GLAXOSMITHKLINE-A0937486A

PATIENT
  Age: 78 Year
  Sex: Female

DRUGS (11)
  1. LISINOPRIL [Concomitant]
  2. VOTRIENT [Suspect]
     Indication: RENAL CELL CARCINOMA
     Dosage: 800MG PER DAY
     Route: 048
     Dates: start: 20101214, end: 20110117
  3. PRILOSEC [Concomitant]
  4. AMITRIPTYLINE HCL [Concomitant]
  5. DIAZIDE [Concomitant]
  6. EXELON [Concomitant]
  7. LOSARTAN POTASSIUM [Concomitant]
  8. SYNTHROID [Concomitant]
  9. ZETIA [Concomitant]
  10. NAMENDA [Concomitant]
  11. NORVASC [Concomitant]

REACTIONS (2)
  - EMBOLISM [None]
  - FEMORAL ARTERY OCCLUSION [None]
